FAERS Safety Report 11167900 (Version 6)
Quarter: 2015Q3

REPORT INFORMATION
  Report Type: Report from Study
  Country: CN (occurrence: CN)
  Receive Date: 20150605
  Receipt Date: 20150824
  Transmission Date: 20151125
  Serious: Yes (Other)
  Sender: FDA-Public Use
  Company Number: CN-UCBSA-2015017566

PATIENT
  Age: 54 Year
  Sex: Female
  Weight: 53 kg

DRUGS (4)
  1. OXCARBAZEPINE. [Concomitant]
     Active Substance: OXCARBAZEPINE
     Indication: EPILEPSY
     Dosage: 0.3 G, 2X/DAY (BID)
     Route: 048
     Dates: start: 201304
  2. SODIUM VALPROATE [Concomitant]
     Active Substance: VALPROATE SODIUM
     Dosage: 0.5 G, 2X/DAY (BID)
     Route: 048
     Dates: start: 20150528
  3. LACOSAMIDE EP [Suspect]
     Active Substance: LACOSAMIDE
     Indication: EPILEPSY
     Dosage: 100 MG, 2X/DAY (BID)
     Route: 048
     Dates: start: 20140326
  4. SODIUM VALPROATE [Concomitant]
     Active Substance: VALPROATE SODIUM
     Indication: EPILEPSY
     Dosage: 0.25 G AND  0.5 G
     Route: 048
     Dates: start: 20140522, end: 20150527

REACTIONS (3)
  - Chronic gastritis [Recovering/Resolving]
  - Gastric ulcer [Recovering/Resolving]
  - Metaplasia [Recovering/Resolving]

NARRATIVE: CASE EVENT DATE: 20150330
